FAERS Safety Report 5814092-6 (Version None)
Quarter: 2008Q3

REPORT INFORMATION
  Report Type: 
  Country: None (occurrence: None)
  Receive Date: 20080717
  Receipt Date: 20080122
  Transmission Date: 20090109
  Serious: No
  Sender: FDA-Public Use
  Company Number: US-BOEHRINGER INGELHEIM GMBH, GERMANY-2007-BP-16664BP

PATIENT
  Sex: Male
  Weight: 83 kg

DRUGS (10)
  1. MIRAPEX [Suspect]
     Indication: PARKINSON'S DISEASE
     Dates: start: 20030101, end: 20050505
  2. FLOMAX [Concomitant]
     Indication: PROSTATIC DISORDER
     Dates: start: 20030301
  3. KLONOPIN [Concomitant]
     Indication: TREMOR
     Dates: start: 20030101, end: 20040107
  4. KLONOPIN [Concomitant]
     Indication: PARKINSON'S DISEASE
  5. HYDROCODONE BITARTRATE [Concomitant]
     Indication: KNEE ARTHROPLASTY
     Dates: start: 20020501, end: 20030101
  6. VIAGRA [Concomitant]
     Indication: PROSTATIC DISORDER
  7. ORPHENGESIC FORTE [Concomitant]
     Route: 048
  8. CAVERJECT [Concomitant]
     Dates: start: 20020701
  9. CELEXA [Concomitant]
     Dates: start: 20021001
  10. ARICEP [Concomitant]
     Indication: PARKINSON'S DISEASE
     Dates: start: 20031101

REACTIONS (8)
  - ANXIETY [None]
  - DEPRESSION [None]
  - EMOTIONAL DISTRESS [None]
  - FEAR [None]
  - OBSESSIVE-COMPULSIVE DISORDER [None]
  - PAIN [None]
  - PATHOLOGICAL GAMBLING [None]
  - STRESS [None]
